FAERS Safety Report 6473303-7 (Version None)
Quarter: 2009Q4

REPORT INFORMATION
  Report Type: 
  Country: None (occurrence: None)
  Receive Date: 20091204
  Receipt Date: 20090109
  Transmission Date: 20100525
  Serious: Yes (Disabling, Other)
  Sender: FDA-Public Use
  Company Number: AU-ELI_LILLY_AND_COMPANY-AU200808005984

PATIENT
  Sex: Female

DRUGS (2)
  1. PROZAC [Suspect]
     Indication: OBSESSIVE-COMPULSIVE DISORDER
     Dosage: 20 MG, UNK
     Route: 064
     Dates: start: 20030101, end: 20031106
  2. PROZAC [Suspect]
     Dosage: 20 MG, UNK
     Route: 063
     Dates: start: 20031106, end: 20040601

REACTIONS (3)
  - AUTISM [None]
  - DRUG EXPOSURE DURING PREGNANCY [None]
  - DRUG EXPOSURE VIA BREAST MILK [None]
